FAERS Safety Report 9689445 (Version 3)
Quarter: 2014Q2

REPORT INFORMATION
  Report Type: Spontaneous
  Country: US (occurrence: US)
  Receive Date: 20131114
  Receipt Date: 20140523
  Transmission Date: 20141212
  Serious: Yes (Hospitalization, Other)
  Sender: FDA-Public Use
  Company Number: US-GILEAD-2013-0067206

PATIENT
  Sex: Female

DRUGS (10)
  1. LETAIRIS [Suspect]
     Indication: PULMONARY ARTERIAL HYPERTENSION
     Dosage: 10 MG, UNK
     Route: 048
     Dates: start: 20111215, end: 20130121
  2. LETAIRIS [Suspect]
     Indication: DIASTOLIC DYSFUNCTION
  3. RANEXA [Concomitant]
     Dosage: 500 MG, UNK
     Route: 048
  4. PLAVIX [Concomitant]
     Dosage: 75 UNK, UNK
     Route: 048
  5. K-DUR [Concomitant]
     Dosage: 20 UNK, UNK
     Route: 048
  6. PRAVASTATIN [Concomitant]
     Dosage: 40 UNK, UNK
     Route: 048
  7. DIOVAN HCT [Concomitant]
     Dosage: 80/125 UNKNOWN, UNK
     Route: 048
  8. ADCIRCA [Concomitant]
     Dosage: 40 UNK, UNK
     Route: 048
  9. LOPID [Concomitant]
     Dosage: 600 UNK, UNK
     Route: 048
  10. RESTORIL                           /00393701/ [Concomitant]
     Route: 048

REACTIONS (2)
  - Cardiac failure [Unknown]
  - Fluid overload [Unknown]
